FAERS Safety Report 9070655 (Version 1)
Quarter: 2013Q1

REPORT INFORMATION
  Report Type: Report from Study
  Country: US (occurrence: US)
  Receive Date: 20130129
  Receipt Date: 20130129
  Transmission Date: 20140127
  Serious: No
  Sender: FDA-Public Use
  Company Number: US-ABBOTT-12P-163-0924871-00

PATIENT
  Sex: Female
  Weight: 86.26 kg

DRUGS (19)
  1. HUMIRA 40 MG/0.8 ML PEN [Suspect]
     Indication: PSORIATIC ARTHROPATHY
     Route: 058
     Dates: start: 20110125
  2. CLOBETASOL [Concomitant]
     Indication: PSORIASIS
  3. PLETAL [Concomitant]
     Indication: ANGIOPATHY
  4. DILTIAZEM [Concomitant]
     Indication: CARDIAC DISORDER
  5. ADVAIR DISKUS [Concomitant]
     Indication: LUNG DISORDER
  6. SPIRIVA [Concomitant]
     Indication: LUNG DISORDER
  7. FUROSEMIDE [Concomitant]
     Indication: DIURETIC THERAPY
  8. METOPROLOL XL [Concomitant]
     Indication: CARDIAC DISORDER
  9. LYRICA [Concomitant]
     Indication: FIBROMYALGIA
  10. OMEPRAZOLE [Concomitant]
     Indication: GASTROOESOPHAGEAL REFLUX DISEASE
  11. PRAVASTATIN SODIUM [Concomitant]
     Indication: BLOOD CHOLESTEROL
  12. ZYRTEC [Concomitant]
     Indication: ANTIINFLAMMATORY THERAPY
  13. CYCLOBENZAPRINE HCL [Concomitant]
     Indication: FIBROMYALGIA
  14. REQUIP [Concomitant]
     Indication: RESTLESS LEGS SYNDROME
  15. HYDROXYZINE HCL [Concomitant]
     Indication: INSOMNIA
  16. CALCIUM CITRATE [Concomitant]
     Indication: MINERAL SUPPLEMENTATION
  17. ASPIRIN [Concomitant]
     Indication: CARDIAC DISORDER
     Route: 048
  18. HYDROCHLOROQUINE [Concomitant]
     Indication: FIBROMYALGIA
  19. ALBUTEROL NEBULIZER [Concomitant]
     Indication: LUNG DISORDER

REACTIONS (3)
  - Rotator cuff syndrome [Recovering/Resolving]
  - Fall [Recovered/Resolved]
  - Musculoskeletal pain [Recovering/Resolving]
